FAERS Safety Report 25473237 (Version 1)
Quarter: 2025Q2

REPORT INFORMATION
  Report Type: Spontaneous
  Country: US (occurrence: US)
  Receive Date: 20250624
  Receipt Date: 20250624
  Transmission Date: 20250716
  Serious: Yes (Other)
  Sender: EVEREST LIFE SCIENCES LLC
  Company Number: US-Everest Life Sciences LLC-2179270

PATIENT
  Sex: Male

DRUGS (3)
  1. DAPSONE [Suspect]
     Active Substance: DAPSONE
     Indication: Product used for unknown indication
  2. JAKAFI [Concomitant]
     Active Substance: RUXOLITINIB
     Dates: start: 202410
  3. TACROLIMUS [Concomitant]
     Active Substance: TACROLIMUS

REACTIONS (2)
  - Cardiac arrest [Unknown]
  - Drug hypersensitivity [Unknown]
